FAERS Safety Report 6824201-8 (Version None)
Quarter: 2010Q3

REPORT INFORMATION
  Report Type: 
  Country: None (occurrence: None)
  Receive Date: 20100708
  Receipt Date: 20061014
  Transmission Date: 20110219
  Serious: No
  Sender: FDA-Public Use
  Company Number: US-PFIZER INC-2006127946

PATIENT
  Sex: Male
  Weight: 81.65 kg

DRUGS (2)
  1. CHANTIX [Suspect]
     Indication: SMOKING CESSATION THERAPY
     Dates: start: 20060901
  2. LOTREL [Concomitant]
     Indication: HYPERTENSION

REACTIONS (2)
  - ABDOMINAL DISCOMFORT [None]
  - VOMITING [None]
